FAERS Safety Report 10601299 (Version 2)
Quarter: 2014Q4

REPORT INFORMATION
  Report Type: Spontaneous
  Country: US (occurrence: None)
  Receive Date: 20141120
  Receipt Date: 20141128
  Transmission Date: 20150529
  Serious: Yes (Hospitalization)
  Sender: FDA-Public Use
  Company Number: 2014-US-014798

PATIENT
  Age: 54 Year
  Sex: Female
  Weight: 71.2 kg

DRUGS (1)
  1. XYREM [Suspect]
     Active Substance: SODIUM OXYBATE
     Indication: NARCOLEPSY
     Route: 048
     Dates: start: 200606

REACTIONS (3)
  - Pericardial effusion [None]
  - Pleural effusion [None]
  - Chest pain [None]

NARRATIVE: CASE EVENT DATE: 20141104
